FAERS Safety Report 17293303 (Version 1)
Quarter: 2020Q1

REPORT INFORMATION
  Report Type: Spontaneous
  Country: US (occurrence: US)
  Receive Date: 20200120
  Receipt Date: 20200120
  Transmission Date: 20200409
  Serious: No
  Sender: FDA-Public Use
  Company Number: None

PATIENT
  Age: 30 Year
  Sex: Female
  Weight: 63 kg

DRUGS (2)
  1. NEUTROGENA PURE AND FREE BABY SUNSCREEN BROAD SPECTRUM SPF 50 [Concomitant]
     Active Substance: ZINC OXIDE
     Route: 061
     Dates: start: 20200110, end: 20200110
  2. PRENATANAL VITAMINS [Concomitant]

REACTIONS (1)
  - Dermatitis contact [None]

NARRATIVE: CASE EVENT DATE: 20200110
